FAERS Safety Report 16747382 (Version 2)
Quarter: 2020Q2

REPORT INFORMATION
  Report Type: Report from Study
  Country: US (occurrence: US)
  Receive Date: 20190827
  Receipt Date: 20200605
  Transmission Date: 20200713
  Serious: Yes (Hospitalization, Other)
  Sender: FDA-Public Use
  Company Number: US-ACTELION-A-NJ2019-188040

PATIENT
  Age: 50 Year
  Sex: Male

DRUGS (15)
  1. ALLOPURINOL. [Concomitant]
     Active Substance: ALLOPURINOL
  2. OPSUMIT [Suspect]
     Active Substance: MACITENTAN
     Indication: PULMONARY HYPERTENSION
     Dosage: 10 MG, QD
     Route: 048
     Dates: start: 20171017
  3. FLECAINIDE [Concomitant]
     Active Substance: FLECAINIDE
  4. METHOCA [Concomitant]
  5. RENVELA [Concomitant]
     Active Substance: SEVELAMER CARBONATE
  6. METOPROLOL. [Concomitant]
     Active Substance: METOPROLOL
  7. ATROVENT [Concomitant]
     Active Substance: IPRATROPIUM BROMIDE
  8. FLONASE ALLERGY RELIEF [Concomitant]
     Active Substance: FLUTICASONE PROPIONATE
  9. BUMETANIDE. [Concomitant]
     Active Substance: BUMETANIDE
  10. SILDENAFIL. [Concomitant]
     Active Substance: SILDENAFIL
  11. LYRICA [Concomitant]
     Active Substance: PREGABALIN
  12. BUPROPION. [Concomitant]
     Active Substance: BUPROPION
  13. TRIAMCINOLONE [Concomitant]
     Active Substance: TRIAMCINOLONE
     Route: 061
  14. NARCAN [Concomitant]
     Active Substance: NALOXONE HYDROCHLORIDE
     Route: 045
  15. ALBUTEROL HFA [Concomitant]
     Active Substance: ALBUTEROL SULFATE

REACTIONS (15)
  - Hypoaesthesia [Unknown]
  - Radicular pain [Unknown]
  - Catheter site haemorrhage [Recovered/Resolved]
  - Pulmonary hypertension [Unknown]
  - Brain natriuretic peptide increased [Unknown]
  - Product dose omission [Unknown]
  - Spinal pain [Unknown]
  - Abdominal distension [Unknown]
  - Gait disturbance [Unknown]
  - Right ventricular failure [Unknown]
  - Weight increased [Unknown]
  - Oedema peripheral [Recovering/Resolving]
  - Abdominal cavity drainage [Unknown]
  - Back pain [Unknown]
  - Pain [Unknown]

NARRATIVE: CASE EVENT DATE: 20190304
